FAERS Safety Report 10057137 (Version 1)
Quarter: 2014Q2

REPORT INFORMATION
  Report Type: Spontaneous
  Country: US (occurrence: US)
  Receive Date: 20140403
  Receipt Date: 20140403
  Transmission Date: 20141212
  Serious: Yes (Hospitalization)
  Sender: FDA-Public Use
  Company Number: PHEH2014US006221

PATIENT
  Sex: Female

DRUGS (7)
  1. METHYLPHENIDATE [Suspect]
     Indication: ATTENTION DEFICIT/HYPERACTIVITY DISORDER
     Dosage: 10 MG, TID
     Route: 048
     Dates: start: 201310
  2. METHYLPHENIDATE [Suspect]
     Dosage: UNK UKN, UNK
     Route: 048
  3. METHYLPHENIDATE [Suspect]
     Dosage: TUESDAY 2 DOSE IN THE MORNING
     Route: 048
  4. METHYLPHENIDATE [Suspect]
     Dosage: UNK UKN, UNK (THURSDAY)
     Route: 048
  5. CLOZAPINE [Concomitant]
     Dosage: UNK UKN, UNK
  6. LANTUS [Concomitant]
     Dosage: UNK UKN, UNK
  7. CELEXA [Concomitant]
     Dosage: UNK UKN, UNK

REACTIONS (8)
  - Regressive behaviour [Not Recovered/Not Resolved]
  - Cerebrovascular accident [Not Recovered/Not Resolved]
  - Dyskinesia [Not Recovered/Not Resolved]
  - Loss of consciousness [Not Recovered/Not Resolved]
  - Gait disturbance [Not Recovered/Not Resolved]
  - Speech disorder [Not Recovered/Not Resolved]
  - Fall [Not Recovered/Not Resolved]
  - Amnesia [Not Recovered/Not Resolved]
